FAERS Safety Report 4411239-3 (Version None)
Quarter: 2004Q3

REPORT INFORMATION
  Report Type: 
  Country: None (occurrence: None)
  Receive Date: 20040727
  Receipt Date: 20040713
  Transmission Date: 20050211
  Serious: Yes (Death)
  Sender: FDA-Public Use
  Company Number: 04H-083-0267278-00

PATIENT
  Sex: 0

DRUGS (4)
  1. LEUCOVORIN CALCIUM [Suspect]
     Indication: CHEMOTHERAPY
     Dosage: 100 MG/M2, ONCE, INTRAVENOUS; DAYS 1 + 2 OF 15 DAY CHEMO
     Route: 042
  2. GEMCITABINE [Suspect]
     Indication: CHEMOTHERAPY
     Dosage: ESCALATING, ONCE, INTRAVENOUS; DAY 1 OF CHEMO CYCLE - 1
     Route: 042
  3. FLUOROURACIL [Suspect]
     Indication: CHEMOTHERAPY
     Dosage: 400 MG/M2, ONCE, INTRAVENOUS; DAY 1+2 OF CHEMOTHERAPY
     Route: 042
  4. OXALIPLATIN [Suspect]
     Indication: CHEMOTHERAPY
     Dosage: 85 MG/M2, ONCE, INTRAVENOUS; DAY 2 OF CHEMOTHERAPY

REACTIONS (2)
  - GASTRIC HAEMORRHAGE [None]
  - HYPOVOLAEMIC SHOCK [None]
